FAERS Safety Report 19006911 (Version 6)
Quarter: 2021Q2

REPORT INFORMATION
  Report Type: Report from Study
  Country: GB (occurrence: GB)
  Receive Date: 20210315
  Receipt Date: 20210427
  Transmission Date: 20210717
  Serious: Yes (Hospitalization, Other)
  Sender: FDA-Public Use
  Company Number: GB-ADVANZ PHARMA-202103001887

PATIENT

DRUGS (10)
  1. OMEPRAZOLE. [Concomitant]
     Active Substance: OMEPRAZOLE
     Dosage: UNK
     Route: 065
  2. ZOLADEX [Concomitant]
     Active Substance: GOSERELIN ACETATE
     Dosage: UNK
     Route: 065
  3. APIXABAN [Concomitant]
     Active Substance: APIXABAN
     Dosage: UNK
     Route: 065
  4. BETMIGA [Concomitant]
     Active Substance: MIRABEGRON
     Dosage: UNK
     Route: 065
  5. PREDNISOLONE. [Suspect]
     Active Substance: PREDNISOLONE
     Indication: PROSTATE CANCER
     Dosage: 5 MG, BID
     Route: 048
     Dates: start: 20210225
  6. CITALOPRAM [Concomitant]
     Active Substance: CITALOPRAM HYDROBROMIDE
     Dosage: UNK
     Route: 065
  7. CYPROTERONE ACETATE [Concomitant]
     Active Substance: CYPROTERONE ACETATE
     Dosage: UNK
     Route: 065
  8. ABIRATERONE ACETATE. [Suspect]
     Active Substance: ABIRATERONE ACETATE
     Indication: PROSTATE CANCER
     Dosage: 1000 MG, QD
     Route: 048
     Dates: start: 20210225
  9. AMOXICILLIN. [Concomitant]
     Active Substance: AMOXICILLIN
     Indication: INFECTION
     Route: 065
     Dates: start: 20210226, end: 202103
  10. RIVASTIGMINE. [Concomitant]
     Active Substance: RIVASTIGMINE
     Dosage: UNK
     Route: 065

REACTIONS (8)
  - Pain [Unknown]
  - Joint swelling [Unknown]
  - Dementia Alzheimer^s type [Unknown]
  - Pain [Not Recovered/Not Resolved]
  - Diarrhoea [Recovered/Resolved]
  - Blood potassium decreased [Not Recovered/Not Resolved]
  - Pulmonary embolism [Recovering/Resolving]
  - General physical health deterioration [Not Recovered/Not Resolved]

NARRATIVE: CASE EVENT DATE: 20210226
